FAERS Safety Report 11221764 (Version 1)
Quarter: 2015Q2

REPORT INFORMATION
  Report Type: Spontaneous
  Country: CA (occurrence: CA)
  Receive Date: 20150626
  Receipt Date: 20150626
  Transmission Date: 20150821
  Serious: Yes (Hospitalization)
  Sender: FDA-Public Use
  Company Number: CA-PFIZER INC-2015190693

PATIENT
  Age: 55 Year
  Sex: Female
  Weight: 63.5 kg

DRUGS (24)
  1. ALDACTONE [Concomitant]
     Active Substance: SPIRONOLACTONE
     Indication: RIGHT VENTRICULAR FAILURE
     Dosage: 12.5 MG, 1X/DAY
  2. PROGRAF [Concomitant]
     Active Substance: TACROLIMUS\TACROLIMUS ANHYDROUS
     Dosage: 2 MG, 1X/DAY IN THE MORNING
     Dates: start: 20150519
  3. VALACYCLOVIR [Concomitant]
     Active Substance: VALACYCLOVIR HYDROCHLORIDE
     Dosage: 400 MG, 2X/DAY
  4. REVATIO [Suspect]
     Active Substance: SILDENAFIL CITRATE
     Indication: RIGHT VENTRICULAR FAILURE
     Dosage: 20 MG, 3X/DAY
     Route: 048
     Dates: start: 20150504, end: 201506
  5. LASIX [Concomitant]
     Active Substance: FUROSEMIDE
     Dosage: 40 MG, 1X/DAY
     Dates: start: 20150604
  6. DILAUDID [Concomitant]
     Active Substance: HYDROMORPHONE HYDROCHLORIDE
     Dosage: 2 MG, AS NEEDED (2-4 MG EVERY 4 HOURS)
     Route: 048
     Dates: start: 20150501
  7. PANTOLOC [Concomitant]
     Active Substance: PANTOPRAZOLE SODIUM
     Dosage: 40 MG, 2X/DAY
     Route: 042
     Dates: start: 20150520
  8. SPIRONOLACTONE. [Concomitant]
     Active Substance: SPIRONOLACTONE
     Dosage: 25 MG, 2X/DAY
     Route: 048
     Dates: start: 20150526
  9. VITAMIN D [Concomitant]
     Active Substance: CHOLECALCIFEROL
     Dosage: 1000 IU, DAILY
     Route: 048
     Dates: start: 20150503
  10. PREDNISONE. [Concomitant]
     Active Substance: PREDNISONE
     Dosage: 25 MG, 1X/DAY
     Dates: start: 20150523
  11. SENOKOT [Concomitant]
     Active Substance: SENNOSIDES
     Dosage: 17.2 MG, AS NEEDED
     Route: 048
     Dates: start: 20150529
  12. VALACYCLOVIR [Concomitant]
     Active Substance: VALACYCLOVIR HYDROCHLORIDE
     Dosage: 1000 MG, 2X/DAY
     Route: 048
     Dates: start: 20150529
  13. METOLAZONE. [Concomitant]
     Active Substance: METOLAZONE
     Dosage: 2.5 MG, AS NEEDED
     Route: 048
     Dates: start: 20150529
  14. COLACE [Concomitant]
     Active Substance: DOCUSATE SODIUM
     Dosage: 100 MG, 2X/DAY
     Route: 048
     Dates: start: 20150501
  15. ATIVAN [Concomitant]
     Active Substance: LORAZEPAM
     Dosage: 1 MG, AS NEEDED (1-2MG ORAL/SUBLINGUAL AT BEDTIME)
     Route: 060
  16. SEPTRA [Concomitant]
     Active Substance: SULFAMETHOXAZOLE\TRIMETHOPRIM
     Dosage: 400MG/80MG (ONE TABLET) HOLD SINCE 25MAY2015 ON MONDAY, WEDNESDAY FRIDAY
     Route: 048
  17. PRAVASTATIN [Concomitant]
     Active Substance: PRAVASTATIN\PRAVASTATIN SODIUM
     Dosage: 10 MG, 1X/DAY
     Route: 048
     Dates: start: 20150505
  18. NYSTATIN SWISH AND SWALLOW [Concomitant]
     Dosage: 1 ML, (SWISH AND SWALLOW) 4X/DAY
     Route: 048
     Dates: start: 20150512
  19. ACICLOVIR [Concomitant]
     Active Substance: ACYCLOVIR
     Dosage: 400 MG, 3X/DAY HOLD ON 29MAY2015
     Route: 042
  20. NYSTATIN. [Concomitant]
     Active Substance: NYSTATIN
     Indication: HEART TRANSPLANT
     Dosage: 10000 IU, UNK
     Route: 048
  21. MYFORTIC [Concomitant]
     Active Substance: MYCOPHENOLATE SODIUM
     Indication: HEART TRANSPLANT
     Dosage: 360 MG, 2X/DAY
  22. MYFORTIC [Concomitant]
     Active Substance: MYCOPHENOLATE SODIUM
     Dosage: 360 MG, 2X/DAY
     Route: 048
     Dates: start: 20150526
  23. CALCIUM CARBONATE. [Concomitant]
     Active Substance: CALCIUM CARBONATE
     Dosage: 500 MG, 3X/DAY
     Route: 048
     Dates: start: 20150529
  24. LASIX [Concomitant]
     Active Substance: FUROSEMIDE
     Dosage: 120 MG, 2X/DAY
     Route: 048
     Dates: start: 20150603

REACTIONS (2)
  - Drug ineffective for unapproved indication [Unknown]
  - Loss of consciousness [Unknown]

NARRATIVE: CASE EVENT DATE: 20150504
